FAERS Safety Report 9096421 (Version 2)
Quarter: 2013Q1

REPORT INFORMATION
  Report Type: Spontaneous
  Country: DK (occurrence: None)
  Receive Date: 20130124
  Receipt Date: 20130201
  Transmission Date: 20140127
  Serious: Yes (Other)
  Sender: FDA-Public Use
  Company Number: 1561782

PATIENT
  Age: 57 Year
  Sex: Female

DRUGS (9)
  1. GEMCITABINE HYDROCHLORIDE [Suspect]
     Indication: PRODUCT USED FOR UNKNOWN INDICATION
  2. VINORELBINE TARTRATE [Suspect]
     Indication: PRODUCT USED FOR UNKNOWN INDICATION
  3. HERCEPTIN [Suspect]
     Indication: PRODUCT USED FOR UNKNOWN INDICATION
  4. XELODA [Suspect]
     Indication: PRODUCT USED FOR UNKNOWN INDICATION
  5. TAXOL [Suspect]
     Indication: PRODUCT USED FOR UNKNOWN INDICATION
  6. LAPATINIB [Suspect]
     Indication: PRODUCT USED FOR UNKNOWN INDICATION
  7. ANTINEOPLASTIC AGENTS [Suspect]
     Indication: PRODUCT USED FOR UNKNOWN INDICATION
  8. TAXOTERE [Concomitant]
  9. THERAPEUTIC RADIOPHARMACEUTICALS [Concomitant]

REACTIONS (5)
  - Breast cancer [None]
  - Metastases to skin [None]
  - Malignant neoplasm progression [None]
  - Metastases to lung [None]
  - Leukopenia [None]
